FAERS Safety Report 18014847 (Version 1)
Quarter: 2020Q3

REPORT INFORMATION
  Report Type: Spontaneous
  Country: CN (occurrence: CN)
  Receive Date: 20200713
  Receipt Date: 20200713
  Transmission Date: 20201103
  Serious: Yes (Hospitalization, Other)
  Sender: FDA-Public Use
  Company Number: CN-ELI_LILLY_AND_COMPANY-CN202007001140

PATIENT
  Sex: Female

DRUGS (7)
  1. HUMALOG [Suspect]
     Active Substance: INSULIN LISPRO
     Dosage: 12 U, EACH MORNING
     Route: 058
     Dates: start: 2017, end: 20200320
  2. HUMALOG [Suspect]
     Active Substance: INSULIN LISPRO
     Dosage: 15 U, DAILY(NOON WHEN HAD RICE)
     Route: 058
     Dates: start: 2017, end: 20200320
  3. HUMALOG [Suspect]
     Active Substance: INSULIN LISPRO
     Dosage: 15 U, DAILY(EXTRA AT NIGHT)
     Route: 058
     Dates: start: 2017, end: 20200320
  4. HUMALOG [Suspect]
     Active Substance: INSULIN LISPRO
     Dosage: 15 U, DAILY (NOON WHEN HAVE RICE AND IN NIGHT)
     Route: 058
     Dates: start: 2017, end: 20200320
  5. HUMALOG [Suspect]
     Active Substance: INSULIN LISPRO
     Indication: DIABETES MELLITUS
     Dosage: 20 U, UNKNOWN
     Route: 058
     Dates: start: 2017, end: 20200320
  6. HUMALOG [Suspect]
     Active Substance: INSULIN LISPRO
     Dosage: 12 U, EACH MORNING
     Route: 058
     Dates: start: 2017, end: 20200320
  7. HUMALOG [Suspect]
     Active Substance: INSULIN LISPRO
     Dosage: 15 U, DAILY(NIGHT)
     Route: 058
     Dates: start: 2017, end: 20200320

REACTIONS (13)
  - Renal failure [Unknown]
  - Hyperglycaemia [Unknown]
  - Malaise [Not Recovered/Not Resolved]
  - Renal pain [Unknown]
  - Weight decreased [Unknown]
  - Decreased appetite [Not Recovered/Not Resolved]
  - Back pain [Unknown]
  - Asthenia [Not Recovered/Not Resolved]
  - Visual impairment [Unknown]
  - Drug intolerance [Recovered/Resolved]
  - Discomfort [Not Recovered/Not Resolved]
  - Dizziness [Not Recovered/Not Resolved]
  - Limb discomfort [Unknown]
